FAERS Safety Report 23422787 (Version 1)
Quarter: 2024Q1

REPORT INFORMATION
  Report Type: Spontaneous
  Country: CN (occurrence: CN)
  Receive Date: 20240119
  Receipt Date: 20240119
  Transmission Date: 20240410
  Serious: Yes (Hospitalization)
  Sender: FDA-Public Use
  Company Number: CN-Merck Healthcare KGaA-2024002053

PATIENT
  Age: 64 Year
  Sex: Male
  Weight: 71 kg

DRUGS (9)
  1. ERBITUX [Suspect]
     Active Substance: CETUXIMAB
     Indication: Rectal cancer
     Dosage: 800 MG, UNKNOWN
     Route: 041
     Dates: start: 20231120, end: 20231120
  2. LEUCOVORIN CALCIUM [Suspect]
     Active Substance: LEUCOVORIN CALCIUM
     Indication: Rectal cancer
     Dosage: 600 MG, DAILY
     Route: 041
     Dates: start: 20231120, end: 20231120
  3. FLUOROURACIL [Suspect]
     Active Substance: FLUOROURACIL
     Indication: Rectal cancer
     Dosage: 0.600 G, DAILY
     Route: 041
     Dates: start: 20231120
  4. FLUOROURACIL [Suspect]
     Active Substance: FLUOROURACIL
     Dosage: 3.600 G, DAILY
     Route: 065
     Dates: end: 20231120
  5. IRINOTECAN HYDROCHLORIDE [Suspect]
     Active Substance: IRINOTECAN HYDROCHLORIDE
     Indication: Rectal cancer
     Dosage: 0.250 G, DAILY
     Route: 041
     Dates: start: 20231120, end: 20231120
  6. SODIUM CHLORIDE [Concomitant]
     Active Substance: SODIUM CHLORIDE
     Indication: Product used for unknown indication
     Dosage: 20 ML, DAILY
     Route: 041
     Dates: start: 20231120
  7. SODIUM CHLORIDE [Concomitant]
     Active Substance: SODIUM CHLORIDE
     Dosage: 240 ML, DAILY
     Route: 065
     Dates: end: 20231120
  8. DEXTROSE [Concomitant]
     Active Substance: DEXTROSE\DEXTROSE MONOHYDRATE
     Indication: Product used for unknown indication
     Dosage: 250 ML, DAILY
     Route: 041
     Dates: start: 20231120
  9. DEXTROSE [Concomitant]
     Active Substance: DEXTROSE\DEXTROSE MONOHYDRATE
     Dosage: 250 ML, DAILY
     Route: 041
     Dates: end: 20231120

REACTIONS (1)
  - Platelet count decreased [Unknown]

NARRATIVE: CASE EVENT DATE: 20240102
